FAERS Safety Report 17405997 (Version 1)
Quarter: 2020Q1

REPORT INFORMATION
  Report Type: Spontaneous
  Country: US (occurrence: US)
  Receive Date: 20200212
  Receipt Date: 20200212
  Transmission Date: 20200409
  Serious: No
  Sender: FDA-Public Use
  Company Number: US-ALLERGAN-1919849US

PATIENT
  Age: 15 Year
  Sex: Female

DRUGS (2)
  1. TAZAROTENE - BP [Suspect]
     Active Substance: TAZAROTENE
     Indication: HAIR DISORDER
  2. TAZAROTENE - BP [Suspect]
     Active Substance: TAZAROTENE
     Indication: ACNE
     Dosage: UNK, QD
     Route: 061
     Dates: start: 20190406, end: 20190407

REACTIONS (3)
  - Off label use [Unknown]
  - Rash papular [Not Recovered/Not Resolved]
  - Dyspnoea [Recovered/Resolved]

NARRATIVE: CASE EVENT DATE: 20190408
